FAERS Safety Report 7683668-6 (Version None)
Quarter: 2011Q3

REPORT INFORMATION
  Report Type: 
  Country: None (occurrence: None)
  Receive Date: 20110815
  Receipt Date: 20110805
  Transmission Date: 20111222
  Serious: Yes (Death, Other)
  Sender: FDA-Public Use
  Company Number: US-MPIJNJ-2011-02991

PATIENT
  Sex: Male

DRUGS (3)
  1. GANCICLOVIR [Suspect]
     Indication: EPSTEIN-BARR VIRAEMIA
  2. VELCADE [Suspect]
     Dosage: 3.1 MG, UNK
     Route: 042
     Dates: start: 20060308, end: 20060308
  3. VELCADE [Suspect]
     Indication: EPSTEIN-BARR VIRAEMIA
     Dosage: 3.2 MG, UNK
     Route: 042
     Dates: start: 20060215, end: 20060225

REACTIONS (2)
  - OSMOTIC DEMYELINATION SYNDROME [None]
  - MULTI-ORGAN FAILURE [None]
